FAERS Safety Report 12074021 (Version 1)
Quarter: 2016Q1

REPORT INFORMATION
  Report Type: Report from Study
  Country: BR (occurrence: BR)
  Receive Date: 20160212
  Receipt Date: 20160212
  Transmission Date: 20160526
  Serious: Yes (Other)
  Sender: FDA-Public Use
  Company Number: PHHY2016BR017804

PATIENT
  Sex: Female

DRUGS (3)
  1. SEEBRI BREEZHALER [Suspect]
     Active Substance: GLYCOPYRROLATE
     Indication: PRODUCT USED FOR UNKNOWN INDICATION
     Dosage: 50 UG, UNK
     Route: 065
  2. FORASEQ [Suspect]
     Active Substance: BUDESONIDE\FORMOTEROL FUMARATE
     Indication: EMPHYSEMA
     Dosage: FORMOTEROL FUMARATE 12 UG AND BUDESONIDE 400 UG
     Route: 065
  3. FORASEQ [Suspect]
     Active Substance: BUDESONIDE\FORMOTEROL FUMARATE
     Dosage: 1 DF (FORMOTEROL FUMARATE 12 UG AND BUDESONIDE 400 UG), UNK
     Route: 065

REACTIONS (2)
  - Speech disorder [Unknown]
  - Laryngeal cancer [Unknown]
